FAERS Safety Report 8462493-2 (Version None)
Quarter: 2012Q2

REPORT INFORMATION
  Report Type: 
  Country: None (occurrence: None)
  Receive Date: 20120625
  Receipt Date: 20120613
  Transmission Date: 20120825
  Serious: Yes (Other)
  Sender: FDA-Public Use
  Company Number: US-ASTRAZENECA-2012SE39520

PATIENT
  Age: 69 Year
  Sex: Male
  Weight: 67.1 kg

DRUGS (11)
  1. CARBO LEVO [Concomitant]
  2. ELAVIL [Concomitant]
  3. COUMADIN [Concomitant]
  4. NEURONTIN [Concomitant]
  5. ATENOLOL [Suspect]
  6. LIDOCAINE [Concomitant]
     Indication: PAIN
  7. SEROQUEL [Suspect]
     Indication: HALLUCINATION
     Route: 048
  8. CRESTOR [Suspect]
     Indication: BLOOD CHOLESTEROL INCREASED
     Route: 048
     Dates: end: 20120601
  9. ACETAMINOPHEN [Concomitant]
  10. AZILECT [Concomitant]
  11. FLOMAX [Concomitant]
     Indication: BENIGN PROSTATIC HYPERPLASIA

REACTIONS (7)
  - BODY HEIGHT DECREASED [None]
  - RESTLESSNESS [None]
  - RIB FRACTURE [None]
  - HALLUCINATION [None]
  - PARKINSON'S DISEASE [None]
  - MYALGIA [None]
  - FALL [None]
